FAERS Safety Report 14545505 (Version 6)
Quarter: 2020Q2

REPORT INFORMATION
  Report Type: Spontaneous
  Country: US (occurrence: US)
  Receive Date: 20180219
  Receipt Date: 20200522
  Transmission Date: 20200713
  Serious: Yes (Hospitalization, Other)
  Sender: FDA-Public Use
  Company Number: US-AMGEN-USASP2018020913

PATIENT
  Sex: Male
  Weight: 67 kg

DRUGS (8)
  1. ENBREL [Suspect]
     Active Substance: ETANERCEPT
     Indication: INFLAMMATION
     Dosage: 1 DOSAGE FORM, QWK
     Route: 065
  2. ENBREL [Suspect]
     Active Substance: ETANERCEPT
     Dosage: 50 MILLILITER, QWK  (50ML PER WEEK)
     Route: 065
     Dates: end: 201803
  3. FOLIC ACID. [Concomitant]
     Active Substance: FOLIC ACID
     Indication: INFLAMMATION
     Dosage: 2 MILLIGRAM, QD
  4. SULFASALAZINE. [Concomitant]
     Active Substance: SULFASALAZINE
     Indication: INFLAMMATION
     Dosage: 2000 MILLIGRAM, QD
  5. FOLIC ACID. [Concomitant]
     Active Substance: FOLIC ACID
     Indication: ARTHRITIS
     Dosage: UNK
     Route: 065
  6. SULFASALAZINE. [Concomitant]
     Active Substance: SULFASALAZINE
     Indication: ARTHRITIS
     Dosage: 1000 MILLIGRAM, BID (TWO 500MG TABLETS IN THE MORNING AND ANOTHER 2 ABOUT 12 HOURS LATER)
     Route: 048
  7. METHOTREXATE. [Concomitant]
     Active Substance: METHOTREXATE
     Indication: INFLAMMATION
     Dosage: 20 MILLIGRAM, QWK
  8. METHOTREXATE. [Concomitant]
     Active Substance: METHOTREXATE
     Indication: ARTHRITIS
     Dosage: 20 MILLIGRAM, QWK
     Route: 048
     Dates: end: 201802

REACTIONS (6)
  - Lack of injection site rotation [Unknown]
  - Eye inflammation [Recovered/Resolved]
  - Eye disorder [Unknown]
  - Pulmonary embolism [Unknown]
  - Injection site pain [Unknown]
  - Drug ineffective [Unknown]
